FAERS Safety Report 9581047 (Version 1)
Quarter: 2013Q4

REPORT INFORMATION
  Report Type: Spontaneous
  Country: US (occurrence: None)
  Receive Date: 20131001
  Receipt Date: 20131001
  Transmission Date: 20140711
  Serious: Yes (Disabling)
  Sender: FDA-Public Use
  Company Number: None

PATIENT
  Sex: Female
  Weight: 74.84 kg

DRUGS (15)
  1. MOBIC [Suspect]
     Indication: BACK PAIN
     Dates: start: 2007, end: 201101
  2. LOTENSIN [Concomitant]
  3. HYTRIN [Concomitant]
  4. MAG-OX [Concomitant]
  5. NIFEREX [Concomitant]
  6. K-DUR [Concomitant]
  7. HYDROCHLOROTHIAZIDE [Concomitant]
  8. VITAMIN D3 [Concomitant]
  9. PHOSLO [Concomitant]
  10. LOTENSIN [Concomitant]
  11. HYTRIN [Concomitant]
  12. HYDROCHLOTHIAZIDE [Concomitant]
  13. MAG-OX [Concomitant]
  14. K-DUR [Concomitant]
  15. NIFREX(IRON) [Concomitant]

REACTIONS (2)
  - Renal failure chronic [None]
  - Renal disorder [None]
